FAERS Safety Report 5219994-X (Version None)
Quarter: 2007Q1

REPORT INFORMATION
  Report Type: 
  Country: None (occurrence: None)
  Receive Date: 20070125
  Receipt Date: 20070118
  Transmission Date: 20070707
  Serious: Yes (Other)
  Sender: FDA-Public Use
  Company Number: PFIZER INC-2007005764

PATIENT
  Sex: Female
  Weight: 49 kg

DRUGS (6)
  1. CHANTIX [Suspect]
     Indication: SMOKING CESSATION THERAPY
  2. ACTONEL [Concomitant]
  3. CARDIZEM CD [Concomitant]
  4. SPIRIVA [Concomitant]
  5. FORADIL [Concomitant]
  6. ALL OTHER THERAPEUTIC PRODUCTS [Concomitant]

REACTIONS (3)
  - NAUSEA [None]
  - RETCHING [None]
  - WEIGHT DECREASED [None]
